FAERS Safety Report 21344451 (Version 1)
Quarter: 2022Q3

REPORT INFORMATION
  Report Type: Other
  Country: US (occurrence: US)
  Receive Date: 20220916
  Receipt Date: 20220916
  Transmission Date: 20221026
  Serious: No
  Sender: FDA-Public Use
  Company Number: US-LEADIANT BIOSCIENCES INC-2022STPI000216

PATIENT
  Sex: Male

DRUGS (1)
  1. MATULANE [Suspect]
     Active Substance: PROCARBAZINE HYDROCHLORIDE
     Indication: Brain cancer metastatic
     Dosage: 200 MILLIGRAM, QD
     Route: 048
     Dates: start: 20220426

REACTIONS (2)
  - Constipation [Recovered/Resolved]
  - Vomiting [Recovered/Resolved]
